FAERS Safety Report 4830440-8 (Version None)
Quarter: 2005Q4

REPORT INFORMATION
  Report Type: 
  Country: None (occurrence: None)
  Receive Date: 20051117
  Receipt Date: 20051021
  Transmission Date: 20060501
  Serious: Yes (Hospitalization)
  Sender: FDA-Public Use
  Company Number: FR-ROCHE-422071

PATIENT
  Age: 32 Year
  Sex: Male

DRUGS (4)
  1. LOXEN [Suspect]
     Indication: MALIGNANT HYPERTENSION
     Route: 042
     Dates: start: 20050411, end: 20050502
  2. CAPTOPRIL [Suspect]
     Indication: DRUG USE FOR UNKNOWN INDICATION
     Route: 048
     Dates: start: 20050414, end: 20050417
  3. ENALAPRIL MALEATE [Concomitant]
     Route: 048
     Dates: start: 20050418
  4. EUPRESSYL [Concomitant]
     Route: 042
     Dates: start: 20050410, end: 20050411

REACTIONS (1)
  - RENAL FAILURE [None]
